FAERS Safety Report 6476473-X (Version None)
Quarter: 2009Q4

REPORT INFORMATION
  Report Type: 
  Country: None (occurrence: None)
  Receive Date: 20091207
  Receipt Date: 20091126
  Transmission Date: 20100525
  Serious: Yes (Death, Hospitalization)
  Sender: FDA-Public Use
  Company Number: LT-JNJFOC-20090809491

PATIENT
  Sex: Female

DRUGS (6)
  1. REMICADE [Suspect]
     Dosage: WEEK VI
     Route: 042
  2. REMICADE [Suspect]
     Dosage: WEEK II
     Route: 042
  3. REMICADE [Suspect]
     Indication: RHEUMATOID ARTHRITIS
     Dosage: WEEK 0
     Route: 042
  4. AZATHIOPRINE [Concomitant]
     Indication: RHEUMATOID ARTHRITIS
  5. PREDNISOLONE [Concomitant]
     Indication: RHEUMATOID ARTHRITIS
  6. NSAID [Concomitant]
     Indication: RHEUMATOID ARTHRITIS

REACTIONS (5)
  - DISSEMINATED TUBERCULOSIS [None]
  - PHYSICAL DISABILITY [None]
  - RHEUMATOID ARTHRITIS [None]
  - SECONDARY AMYLOIDOSIS [None]
  - SEPSIS [None]
